FAERS Safety Report 5875740-8 (Version None)
Quarter: 2008Q3

REPORT INFORMATION
  Report Type: 
  Country: None (occurrence: None)
  Receive Date: 20080905
  Receipt Date: 20080826
  Transmission Date: 20090109
  Serious: Yes (Hospitalization)
  Sender: FDA-Public Use
  Company Number: POMP-1000295

PATIENT
  Age: 18 Month
  Sex: Male
  Weight: 9.1 kg

DRUGS (1)
  1. MYOZYME [Suspect]
     Indication: GLYCOGEN STORAGE DISEASE TYPE II
     Dosage: 20 MG/KG, Q2W, INTRAVENOUS
     Route: 042
     Dates: start: 20070705

REACTIONS (11)
  - APNOEA [None]
  - BRONCHIOLITIS [None]
  - CHOKING [None]
  - CONJUNCTIVITIS [None]
  - ERYTHEMA [None]
  - INFLUENZA [None]
  - INFUSION RELATED REACTION [None]
  - PNEUMONIA ASPIRATION [None]
  - RESPIRATORY ARREST [None]
  - RESPIRATORY DISTRESS [None]
  - VIRAL INFECTION [None]
